FAERS Safety Report 6425150-X (Version None)
Quarter: 2009Q4

REPORT INFORMATION
  Report Type: 
  Country: None (occurrence: None)
  Receive Date: 20091103
  Receipt Date: 20091020
  Transmission Date: 20100525
  Serious: Yes (Life-Threatening, Hospitalization)
  Sender: FDA-Public Use
  Company Number: PL-GENENTECH-291037

PATIENT
  Sex: Male
  Weight: 53 kg

DRUGS (12)
  1. BLINDED BEVACIZUMAB [Suspect]
     Indication: DIFFUSE LARGE B-CELL LYMPHOMA
     Dosage: 1 UNK, QD
     Route: 042
     Dates: start: 20090908
  2. CYCLOPHOSPHAMIDE [Suspect]
     Indication: DIFFUSE LARGE B-CELL LYMPHOMA
     Dosage: 1 UNK, QD
     Route: 042
     Dates: start: 20090908
  3. DOXORUBICIN HCL [Suspect]
     Indication: DIFFUSE LARGE B-CELL LYMPHOMA
     Dosage: 1 UNK, QD
     Route: 042
     Dates: start: 20090908
  4. BLINDED PLACEBO [Suspect]
     Indication: DIFFUSE LARGE B-CELL LYMPHOMA
     Dosage: 1 UNK, QD
     Route: 042
     Dates: start: 20090908
  5. PREDNISONE TAB [Suspect]
     Indication: DIFFUSE LARGE B-CELL LYMPHOMA
     Dosage: 1 UNK, QD
     Route: 042
     Dates: start: 20090908
  6. BLINDED RITUXIMAB [Suspect]
     Indication: DIFFUSE LARGE B-CELL LYMPHOMA
     Dosage: 1 UNK, QD
     Route: 042
     Dates: start: 20090908
  7. VINCRISTINE [Suspect]
     Indication: DIFFUSE LARGE B-CELL LYMPHOMA
     Dosage: 1 UNK, QD
     Route: 042
     Dates: start: 20090908
  8. RITUXAN [Suspect]
     Indication: DIFFUSE LARGE B-CELL LYMPHOMA
     Dosage: 1 UNK, QD
     Route: 042
     Dates: start: 20090908
  9. CYCLOPHOSPHAMIDE [Suspect]
     Indication: DIFFUSE LARGE B-CELL LYMPHOMA
     Dosage: 1 UNK, QD
     Route: 042
     Dates: start: 20090908
  10. DOXORUBICIN HCL [Suspect]
     Indication: DIFFUSE LARGE B-CELL LYMPHOMA
     Dosage: 1 UNK, QD
     Route: 042
     Dates: start: 20091008
  11. ONCOVIN [Suspect]
     Indication: DIFFUSE LARGE B-CELL LYMPHOMA
     Dosage: 1 UNK, QD
     Route: 042
     Dates: start: 20090908
  12. PREDNISONE [Suspect]
     Indication: DIFFUSE LARGE B-CELL LYMPHOMA
     Dosage: UNK
     Route: 048
     Dates: start: 20091008

REACTIONS (2)
  - PERITONITIS [None]
  - SPLENIC ABSCESS [None]
